FAERS Safety Report 8578022-9 (Version None)
Quarter: 2012Q3

REPORT INFORMATION
  Report Type: 
  Country: None (occurrence: None)
  Receive Date: 20120808
  Receipt Date: 20120728
  Transmission Date: 20120928
  Serious: Yes (Death, Hospitalization, Other)
  Sender: FDA-Public Use
  Company Number: US-PAR PHARMACEUTICAL, INC-2012SCPR004537

PATIENT

DRUGS (4)
  1. VALPROIC ACID [Interacting]
     Indication: CONVULSION
     Dosage: UNK, UNKNOWN
     Route: 065
  2. MISTLETOE [Interacting]
     Indication: NEOPLASM MALIGNANT
     Dosage: EVERY 3 DAYS
     Route: 051
  3. ASCORBIC ACID [Suspect]
     Indication: NEOPLASM MALIGNANT
     Dosage: UNK, BIWEEKLY
     Route: 051
  4. LEVETIRACETAM [Interacting]
     Indication: CONVULSION
     Dosage: UNK, UNKNOWN
     Route: 065

REACTIONS (8)
  - OEDEMA [None]
  - CEREBRAL HAEMORRHAGE [None]
  - DEATH [None]
  - DRUG INTERACTION [None]
  - CONFUSIONAL STATE [None]
  - FATIGUE [None]
  - CONVULSIVE THRESHOLD LOWERED [None]
  - AGITATION [None]
